FAERS Safety Report 19078750 (Version 2)
Quarter: 2021Q4

REPORT INFORMATION
  Report Type: Spontaneous
  Country: US (occurrence: US)
  Receive Date: 20210331
  Receipt Date: 20211217
  Transmission Date: 20220303
  Serious: Yes (Life-Threatening, Other)
  Sender: FDA-Public Use
  Company Number: US-PFIZER INC-87042710-U

PATIENT
  Age: 60 Year
  Sex: Male
  Weight: 92 kg

DRUGS (20)
  1. VERAPAMIL HCL [Interacting]
     Active Substance: VERAPAMIL HYDROCHLORIDE
     Indication: Angina pectoris
     Dosage: 80 MG, 3X/DAY
     Route: 048
     Dates: start: 1985
  2. VERAPAMIL HCL [Interacting]
     Active Substance: VERAPAMIL HYDROCHLORIDE
     Dosage: 80 MG
  3. DANTROLENE [Interacting]
     Active Substance: DANTROLENE
     Dosage: 200 MG (2.4MG/KG, TOTAL DOSE 220MG)
     Route: 042
  4. DIAZEPAM [Concomitant]
     Active Substance: DIAZEPAM
     Indication: Anxiety
     Dosage: 10 MG, 3X/DAY
     Route: 048
  5. DIAZEPAM [Concomitant]
     Active Substance: DIAZEPAM
     Dosage: 15 MG
  6. INSULIN NOS [Concomitant]
     Active Substance: INSULIN NOS
     Dosage: UNK
  7. NPH INSULIN [Concomitant]
     Active Substance: INSULIN BEEF
     Dosage: 20 UNITS
  8. METOCLOPRAMIDE [Concomitant]
     Active Substance: METOCLOPRAMIDE
     Dosage: 10 MG
  9. MORPHINE [Concomitant]
     Active Substance: MORPHINE
     Dosage: 10 MG
     Route: 030
  10. NIFEDIPINE [Concomitant]
     Active Substance: NIFEDIPINE
     Dosage: UNK
  11. TRANSDERM-NITRO [Concomitant]
     Dosage: 10 MG, DAILY
  12. TRANSDERM-NITRO [Concomitant]
     Dosage: 10 MG
  13. RANITIDINE [Concomitant]
     Active Substance: RANITIDINE
     Dosage: RANITIDINE 150 MG AT BEDTIME
  14. RANITIDINE [Concomitant]
     Active Substance: RANITIDINE
     Dosage: 150 MG
     Route: 048
  15. FENTANYL [Concomitant]
     Active Substance: FENTANYL
     Indication: Anaesthesia
     Dosage: UNK
     Route: 042
  16. ATRACURIUM [Concomitant]
     Active Substance: ATRACURIUM
     Indication: Anaesthesia
     Dosage: 50 MG
  17. DEXTROSE [Concomitant]
     Active Substance: DEXTROSE
     Dosage: ON THE NIGHT BEFORE SURGERY AT 75 ML/H
  18. OXYGEN [Concomitant]
     Active Substance: OXYGEN
     Indication: Mechanical ventilation
     Dosage: UNK
  19. SALINE [BORIC ACID] [Concomitant]
     Dosage: UNK
  20. HETASTARCH [Concomitant]
     Active Substance: HETASTARCH
     Dosage: 500 ML

REACTIONS (4)
  - Cardiac failure [Recovered/Resolved]
  - Hyperkalaemia [Recovered/Resolved]
  - Drug interaction [Unknown]
  - Metabolic acidosis [Recovered/Resolved]
